FAERS Safety Report 5564805-6 (Version None)
Quarter: 2007Q4

REPORT INFORMATION
  Report Type: 
  Country: None (occurrence: None)
  Receive Date: 20071212
  Receipt Date: 20071126
  Transmission Date: 20080405
  Serious: Yes (Other)
  Sender: FDA-Public Use
  Company Number: 390009N07JPN

PATIENT
  Age: 37 Year
  Sex: Female
  Weight: 56 kg

DRUGS (4)
  1. CETRORELIX ACETATE(CETRORELIX ACETATE) [Suspect]
     Indication: INFERTILITY
     Dosage: 0.25 MG, 1 IN 1 DAYS, SUBCUTANEOUS
     Route: 058
     Dates: start: 20070416, end: 20070419
  2. FOLYRMON(MENOTROPHIN) [Concomitant]
  3. MENOTROPINS [Concomitant]
  4. HCG(CHORIONIC GONADOTROPHIN) [Concomitant]

REACTIONS (2)
  - CEREBRAL INFARCTION [None]
  - OVARIAN HYPERSTIMULATION SYNDROME [None]
